FAERS Safety Report 10450737 (Version 2)
Quarter: 2014Q4

REPORT INFORMATION
  Report Type: Spontaneous
  Country: JP (occurrence: JP)
  Receive Date: 20140912
  Receipt Date: 20141007
  Transmission Date: 20150528
  Serious: Yes (Death, Life-Threatening, Hospitalization)
  Sender: FDA-Public Use
  Company Number: JP-MYLANLABS-2014M1003356

PATIENT
  Age: 8 Decade
  Sex: Male

DRUGS (1)
  1. PREDNISOLONE. [Suspect]
     Active Substance: PREDNISOLONE
     Dosage: 25 MG, UNK
     Route: 048

REACTIONS (6)
  - Inflammation [Fatal]
  - Anaemia [Unknown]
  - Renal failure [Fatal]
  - Disseminated intravascular coagulation [Unknown]
  - Acute respiratory distress syndrome [Fatal]
  - Infection [Fatal]
